FAERS Safety Report 10641531 (Version 2)
Quarter: 2014Q4

REPORT INFORMATION
  Report Type: Spontaneous
  Country: FR (occurrence: FR)
  Receive Date: 20141209
  Receipt Date: 20141209
  Transmission Date: 20150529
  Serious: Yes (Other)
  Sender: FDA-Public Use
  Company Number: FR-INCYTE CORPORATION-2014IN003371

PATIENT
  Age: 72 Year
  Sex: Male
  Weight: 80 kg

DRUGS (3)
  1. JAKAFI [Suspect]
     Active Substance: RUXOLITINIB
     Indication: ANAEMIA
     Dosage: 5 MG, BID
     Route: 048
     Dates: start: 201301
  2. JAKAFI [Suspect]
     Active Substance: RUXOLITINIB
     Indication: OFF LABEL USE
  3. JAKAFI [Suspect]
     Active Substance: RUXOLITINIB
     Indication: THROMBOCYTOPENIA
     Dosage: UNK
     Route: 065

REACTIONS (4)
  - Fatigue [Not Recovered/Not Resolved]
  - Anaemia [Not Recovered/Not Resolved]
  - Drug ineffective [Unknown]
  - Thrombocytopenia [Unknown]

NARRATIVE: CASE EVENT DATE: 201407
